FAERS Safety Report 5258584-X (Version None)
Quarter: 2007Q1

REPORT INFORMATION
  Report Type: 
  Country: None (occurrence: None)
  Receive Date: 20070305
  Receipt Date: 20070219
  Transmission Date: 20070707
  Serious: Yes (Hospitalization, Other)
  Sender: FDA-Public Use
  Company Number: 234537

PATIENT
  Age: 68 Year
  Sex: Female
  Weight: 67 kg

DRUGS (3)
  1. AVASTIN [Suspect]
     Indication: COLORECTAL CANCER
     Dosage: 355, 2/MONTH, INTRAVENOUS
     Route: 042
     Dates: start: 20061211
  2. OXALIPLATIN [Suspect]
     Indication: COLORECTAL CANCER
     Dosage: 112
     Dates: start: 20061211
  3. FLUOROURACIL [Concomitant]

REACTIONS (3)
  - HAEMOLYSIS [None]
  - PLATELET COUNT DECREASED [None]
  - WHITE BLOOD CELL COUNT DECREASED [None]
